FAERS Safety Report 10958331 (Version 1)
Quarter: 2015Q1

REPORT INFORMATION
  Report Type: Report from Study
  Country: FR (occurrence: FR)
  Receive Date: 20150326
  Receipt Date: 20150326
  Transmission Date: 20150721
  Serious: Yes (Hospitalization, Disabling, Other)
  Sender: FDA-Public Use
  Company Number: PHHY2013FR041755

PATIENT
  Age: 56 Year
  Sex: Male
  Weight: 72 kg

DRUGS (5)
  1. SOLUPRED [Suspect]
     Active Substance: PREDNISOLONE
     Indication: IMMUNOSUPPRESSION
     Route: 065
     Dates: start: 20101213
  2. MYCOPHENOLIC ACID. [Suspect]
     Active Substance: MYCOPHENOLIC ACID
     Indication: IMMUNOSUPPRESSION
     Dosage: 1440 MG, QD
     Route: 048
     Dates: start: 20101213
  3. NEORAL [Suspect]
     Active Substance: CYCLOSPORINE
     Indication: IMMUNOSUPPRESSION
  4. MYCOPHENOLIC ACID. [Suspect]
     Active Substance: MYCOPHENOLIC ACID
     Indication: RENAL TRANSPLANT
  5. NEORAL [Suspect]
     Active Substance: CYCLOSPORINE
     Indication: RENAL TRANSPLANT
     Dosage: 1440 MG, DAILY
     Route: 048
     Dates: start: 20111213

REACTIONS (3)
  - Chronic kidney disease [Recovered/Resolved]
  - Acute kidney injury [Recovered/Resolved with Sequelae]
  - Renal failure [Not Recovered/Not Resolved]

NARRATIVE: CASE EVENT DATE: 20120622
